FAERS Safety Report 7406129-8 (Version None)
Quarter: 2011Q2

REPORT INFORMATION
  Report Type: 
  Country: None (occurrence: None)
  Receive Date: 20110411
  Receipt Date: 20110405
  Transmission Date: 20111010
  Serious: Yes (Hospitalization, Other)
  Sender: FDA-Public Use
  Company Number: US-PFIZER INC-2011040371

PATIENT
  Sex: Female

DRUGS (1)
  1. SUTENT [Suspect]
     Dosage: 37.5 MG, 1X/DAY, X 28 DAYS Q 42
     Dates: start: 20110202, end: 20110331

REACTIONS (3)
  - VENA CAVA THROMBOSIS [None]
  - HIP FRACTURE [None]
  - DYSPNOEA EXERTIONAL [None]
